FAERS Safety Report 8541877-8 (Version None)
Quarter: 2012Q3

REPORT INFORMATION
  Report Type: 
  Country: None (occurrence: None)
  Receive Date: 20120726
  Receipt Date: 20111004
  Transmission Date: 20120928
  Serious: No
  Sender: FDA-Public Use
  Company Number: US-ASTRAZENECA-2011SE53862

PATIENT
  Age: 58 Year
  Sex: Female
  Weight: 55.8 kg

DRUGS (1)
  1. SEROQUEL [Suspect]
     Indication: BIPOLAR DISORDER
     Route: 048
     Dates: start: 20010101

REACTIONS (3)
  - MIGRAINE [None]
  - INSOMNIA [None]
  - DRUG DOSE OMISSION [None]
